FAERS Safety Report 9397194 (Version 3)
Quarter: 2013Q4

REPORT INFORMATION
  Report Type: Report from Study
  Country: BR (occurrence: BR)
  Receive Date: 20130712
  Receipt Date: 20131004
  Transmission Date: 20140711
  Serious: Yes (Death, Hospitalization, Other)
  Sender: FDA-Public Use
  Company Number: PHHY2013BR073920

PATIENT
  Sex: Male

DRUGS (2)
  1. EXELON [Suspect]
     Indication: PARKINSON^S DISEASE
     Dosage: 4 DF, DAILY
     Route: 048
  2. EXELON PATCH [Suspect]
     Indication: PARKINSON^S DISEASE
     Dosage: 9.5 MG, DAILY
     Route: 062

REACTIONS (4)
  - Respiratory failure [Fatal]
  - Viral infection [Not Recovered/Not Resolved]
  - Agitation [Not Recovered/Not Resolved]
  - Drug ineffective [Unknown]
